FAERS Safety Report 6760514-6 (Version None)
Quarter: 2010Q2

REPORT INFORMATION
  Report Type: 
  Country: None (occurrence: None)
  Receive Date: 20100608
  Receipt Date: 20100531
  Transmission Date: 20101027
  Serious: Yes (Disabling, Other)
  Sender: FDA-Public Use
  Company Number: JP-ASTRAZENECA-2010SE14317

PATIENT
  Age: 26158 Day
  Sex: Female
  Weight: 53 kg

DRUGS (10)
  1. CRESTOR [Suspect]
     Indication: HYPERCHOLESTEROLAEMIA
     Route: 048
     Dates: start: 20070403, end: 20090307
  2. CRESTOR [Suspect]
     Route: 048
     Dates: start: 20090929, end: 20091030
  3. CRESTOR [Suspect]
     Route: 048
     Dates: start: 20091031, end: 20100111
  4. LIPITOR [Suspect]
     Indication: HYPERCHOLESTEROLAEMIA
     Route: 048
     Dates: start: 20070101, end: 20070402
  5. MEVAN [Suspect]
     Indication: HYPERCHOLESTEROLAEMIA
     Route: 048
     Dates: start: 20100112
  6. OLMETEC [Concomitant]
     Indication: HYPERTENSION
     Route: 048
     Dates: start: 20090812
  7. CALBLOCK [Concomitant]
     Indication: HYPERTENSION
     Route: 048
     Dates: start: 20090812, end: 20090913
  8. CALBLOCK [Concomitant]
     Route: 048
     Dates: start: 20090914
  9. LASIX [Concomitant]
     Indication: HYPERTENSION
     Route: 048
     Dates: start: 20090914
  10. WARFARIN SODIUM [Concomitant]
     Route: 048
     Dates: start: 20090929

REACTIONS (3)
  - HEPATIC FUNCTION ABNORMAL [None]
  - INTERSTITIAL LUNG DISEASE [None]
  - PRODUCTIVE COUGH [None]
